FAERS Safety Report 6980525-5 (Version None)
Quarter: 2010Q3

REPORT INFORMATION
  Report Type: 
  Country: None (occurrence: None)
  Receive Date: 20100914
  Receipt Date: 20100907
  Transmission Date: 20110219
  Serious: Yes (Death)
  Sender: FDA-Public Use
  Company Number: PHHY2010US58988

PATIENT
  Sex: Male
  Weight: 72.562 kg

DRUGS (1)
  1. GLEEVEC [Suspect]
     Indication: CHRONIC MYELOID LEUKAEMIA
     Dosage: 400 G, QD
     Route: 048
     Dates: start: 20071001

REACTIONS (2)
  - DIARRHOEA [None]
  - PARKINSON'S DISEASE [None]
